FAERS Safety Report 22097408 (Version 1)
Quarter: 2023Q1

REPORT INFORMATION
  Report Type: Other
  Country: DE (occurrence: None)
  Receive Date: 20230315
  Receipt Date: 20230315
  Transmission Date: 20230418
  Serious: No
  Sender: FDA-Public Use
  Company Number: DE-ROCHE-3309361

PATIENT
  Age: 24 Year
  Sex: Female

DRUGS (11)
  1. OCRELIZUMAB [Suspect]
     Active Substance: OCRELIZUMAB
     Indication: Relapsing multiple sclerosis
     Dosage: DOSE FREQUENCY: ONCE
     Route: 042
     Dates: start: 20220309
  2. OCRELIZUMAB [Suspect]
     Active Substance: OCRELIZUMAB
     Dosage: DOSE FREQUENCY: ONCE
     Route: 042
     Dates: start: 20220906
  3. CHOLECALCIFEROL [Concomitant]
     Active Substance: CHOLECALCIFEROL
     Indication: Vitamin D deficiency
     Dosage: DOSE: 20000?DOSE FREQUENCY: QS (EVERY WEEK)
     Route: 048
     Dates: start: 20220207
  4. COMIRNATY [Concomitant]
     Active Substance: TOZINAMERAN
     Indication: Prophylaxis
     Dosage: DOSE: 30?DOSE FREQUENCY: OTHER
     Route: 030
     Dates: start: 20220202, end: 20220202
  5. VOLON [Concomitant]
     Indication: Prophylaxis
     Dosage: DOSE FREQUENCY: ONCE
     Route: 042
     Dates: start: 20220309, end: 20220309
  6. VOLON [Concomitant]
     Dosage: DOSE FREQUENCY: ONCE
     Route: 042
     Dates: start: 20220408, end: 20220408
  7. VOLON [Concomitant]
     Dosage: DOSE FREQUENCY: ONCE
     Route: 042
     Dates: start: 20220906, end: 20220906
  8. VOLON [Concomitant]
     Dosage: DOSE FREQUENCY: ONCE
     Route: 042
     Dates: start: 20230308, end: 20230308
  9. EBASTINE [Concomitant]
     Active Substance: EBASTINE
     Indication: Prophylaxis
     Dosage: DOSE FREQUENCY: TAKEN OVER 3 DAYS, TWICE A DAY, START 1 DAY BEFORE INFUSION
     Route: 048
     Dates: start: 20220308, end: 20220310
  10. EBASTINE [Concomitant]
     Active Substance: EBASTINE
     Dosage: DOSE FREQUENCY: TAKEN OVER 3 DAYS, TWICE A DAY, START 1 DAY BEFORE INFUSION
     Route: 048
     Dates: start: 20220407, end: 20220409
  11. EBASTINE [Concomitant]
     Active Substance: EBASTINE
     Dosage: DOSE FREQUENCY: 2 TIMES A DAY FOR 3 DAYS, START 1 DAY BEFORE INFUSION
     Route: 048
     Dates: start: 20230307, end: 20230309

REACTIONS (1)
  - COVID-19 [Recovered/Resolved]

NARRATIVE: CASE EVENT DATE: 20221201
